FAERS Safety Report 5188499-7 (Version None)
Quarter: 2006Q4

REPORT INFORMATION
  Report Type: 
  Country: None (occurrence: None)
  Receive Date: 20061214
  Receipt Date: 20061201
  Transmission Date: 20070319
  Serious: Yes (Hospitalization)
  Sender: FDA-Public Use
  Company Number: 2006PV026171

PATIENT
  Age: 56 Year
  Sex: Male
  Weight: 89.3586 kg

DRUGS (11)
  1. BYETTA [Suspect]
     Indication: DIABETES MELLITUS NON-INSULIN-DEPENDENT
     Dosage: SEE IMAGE, SC
     Route: 058
     Dates: start: 20061007, end: 20061106
  2. BYETTA [Suspect]
     Indication: DIABETES MELLITUS NON-INSULIN-DEPENDENT
     Dosage: SEE IMAGE, SC
     Route: 058
     Dates: start: 20061107, end: 20061130
  3. GLIPIZIDE [Concomitant]
  4. TRICOR [Concomitant]
  5. ASPIRIN [Concomitant]
  6. ZANTAC [Concomitant]
  7. LISINOPRIL [Concomitant]
  8. LIPITOR [Concomitant]
  9. M.V.I. [Concomitant]
  10. METFORMIN HCL [Concomitant]
  11. VIAGRA [Concomitant]

REACTIONS (1)
  - RENAL FAILURE ACUTE [None]
